FAERS Safety Report 17285170 (Version 2)
Quarter: 2020Q1

REPORT INFORMATION
  Report Type: Spontaneous
  Country: JP (occurrence: JP)
  Receive Date: 20200117
  Receipt Date: 20200203
  Transmission Date: 20200409
  Serious: Yes (Hospitalization)
  Sender: FDA-Public Use
  Company Number: JP-DSJP-DSJ-2020-101364

PATIENT

DRUGS (1)
  1. LIXIANA TABLETS 15MG [Suspect]
     Active Substance: EDOXABAN TOSYLATE
     Indication: ATRIAL FIBRILLATION
     Dosage: 15 MG, QD
     Route: 048
     Dates: start: 2019

REACTIONS (6)
  - Rash [Unknown]
  - Dehydration [Recovering/Resolving]
  - Blister [Recovering/Resolving]
  - Erythema [Unknown]
  - Pruritus [Unknown]
  - Underdose [Unknown]

NARRATIVE: CASE EVENT DATE: 20200107
